FAERS Safety Report 17801706 (Version 1)
Quarter: 2020Q2

REPORT INFORMATION
  Report Type: Spontaneous
  Country: US (occurrence: US)
  Receive Date: 20200518
  Receipt Date: 20200518
  Transmission Date: 20200714
  Serious: Yes (Death, Life-Threatening)
  Sender: FDA-Public Use
  Company Number: None

PATIENT
  Age: 77 Year
  Sex: Male
  Weight: 106.2 kg

DRUGS (13)
  1. REMDESIVIR. [Suspect]
     Active Substance: REMDESIVIR
     Indication: COVID-19
     Route: 042
  2. CEFEPIME 2G IV Q12H [Concomitant]
     Dates: start: 20200511, end: 20200515
  3. PANTOPRAZOLE 20MG PO Q24H [Concomitant]
     Dates: start: 20200319, end: 20200514
  4. TAMSULOSIN 0.4MG PO Q24H [Concomitant]
     Dates: start: 20200319, end: 20200514
  5. DOXYCYCLINE 100MG PO BID [Concomitant]
     Dates: start: 20200511, end: 20200513
  6. METHYLPREDNISOLONE 60MG IV Q12H [Concomitant]
     Dates: start: 20200511, end: 20200513
  7. METHYLPREDNISOLONE 60MG IV Q24H [Concomitant]
     Dates: start: 20200514, end: 20200514
  8. ZINC CAPSULE 50MG PO Q24H [Concomitant]
  9. IPRATROPIUM INH 2 PUFFS PO Q6H [Concomitant]
     Dates: start: 20200511, end: 20200515
  10. SERTRALINE 100MG PO Q24H [Concomitant]
     Dates: start: 20200319, end: 20200514
  11. ENOXAPARIN 30MG SC Q12H [Concomitant]
     Dates: start: 20200511, end: 20200515
  12. ASCORBIC ACID 1500MG IV Q6H [Concomitant]
     Dates: start: 20200512, end: 20200514
  13. THIAMINE 200MG IV Q12H [Concomitant]
     Dates: start: 20200511, end: 20200514

REACTIONS (3)
  - Oxygen saturation decreased [None]
  - Condition aggravated [None]
  - General physical health deterioration [None]

NARRATIVE: CASE EVENT DATE: 20200513
